FAERS Safety Report 8854436 (Version 1)
Quarter: 2012Q4

REPORT INFORMATION
  Report Type: 
  Country: US (occurrence: US)
  Receive Date: 20121023
  Receipt Date: 20121023
  Transmission Date: 20130627
  Serious: Yes (Other)
  Sender: FDA-Public Use
  Company Number: US-B.I. PHARMACEUTICALS,INC./RIDGEFIELD-2012-BP-25817BP

PATIENT
  Sex: Male
  Weight: 72 kg

DRUGS (1)
  1. FLOMAX CAPSULES [Suspect]
     Indication: BENIGN PROSTATIC HYPERPLASIA
     Dosage: 0.4 mg
     Route: 048
     Dates: start: 1997, end: 201209

REACTIONS (2)
  - Prostate cancer [Not Recovered/Not Resolved]
  - Abnormal loss of weight [Not Recovered/Not Resolved]
